FAERS Safety Report 12402551 (Version 2)
Quarter: 2016Q2

REPORT INFORMATION
  Report Type: Spontaneous
  Country: US (occurrence: US)
  Receive Date: 20160525
  Receipt Date: 20160527
  Transmission Date: 20160815
  Serious: No
  Sender: FDA-Public Use
  Company Number: US-SA-2016SA054744

PATIENT
  Age: 79 Year
  Sex: Female

DRUGS (4)
  1. LANTUS SOLOSTAR [Suspect]
     Active Substance: INSULIN GLARGINE
     Indication: TYPE 2 DIABETES MELLITUS
     Dosage: DOSE:95 UNIT(S)
     Dates: start: 201603
  2. LANTUS [Concomitant]
     Active Substance: INSULIN GLARGINE
     Dates: start: 201603
  3. METFORMIN [Concomitant]
     Active Substance: METFORMIN HYDROCHLORIDE
  4. SOLOSTAR [Concomitant]
     Active Substance: DEVICE
     Dates: start: 201603

REACTIONS (7)
  - Stress [Unknown]
  - Weight increased [Unknown]
  - Malaise [Unknown]
  - Blood glucose increased [Unknown]
  - Acne [Unknown]
  - Swelling [Unknown]
  - Erythema [Unknown]
